FAERS Safety Report 4591114-4 (Version None)
Quarter: 2005Q1

REPORT INFORMATION
  Report Type: 
  Country: None (occurrence: None)
  Receive Date: 20050223
  Receipt Date: 20050223
  Transmission Date: 20050727
  Serious: Yes (Other)
  Sender: FDA-Public Use
  Company Number: None

PATIENT
  Sex: Male

DRUGS (6)
  1. NIASPAN [Suspect]
     Indication: HYPERLIPIDAEMIA
     Dosage: 500 MG HS ORAL
     Route: 048
  2. HYDROCHLOROTHIAZIDE [Concomitant]
  3. LORATADINE [Concomitant]
  4. PROPRANOLOL [Concomitant]
  5. RANITIDINE [Concomitant]
  6. TERAZOSIN [Concomitant]

REACTIONS (5)
  - HYPOAESTHESIA ORAL [None]
  - OEDEMA MOUTH [None]
  - RASH [None]
  - SWELLING FACE [None]
  - TREMOR [None]
